FAERS Safety Report 5581696-8 (Version None)
Quarter: 2008Q1

REPORT INFORMATION
  Report Type: 
  Country: None (occurrence: None)
  Receive Date: 20080104
  Receipt Date: 20071221
  Transmission Date: 20080703
  Serious: Yes (Disabling, Other)
  Sender: FDA-Public Use
  Company Number: JP-AMGEN-US251621

PATIENT
  Sex: Female

DRUGS (8)
  1. ENBREL [Suspect]
     Indication: RHEUMATOID ARTHRITIS
     Route: 058
     Dates: start: 20060815, end: 20061010
  2. RIMATIL [Concomitant]
     Indication: RHEUMATOID ARTHRITIS
     Dosage: 150 MG (FREQUENCY UNKNOWN)
     Route: 048
     Dates: end: 20060830
  3. FOLIAMIN [Concomitant]
     Dosage: UNSPECIFIED
     Route: 048
  4. SOLON [Concomitant]
     Dosage: UNSPECIFIED
     Route: 048
  5. PREDONINE [Concomitant]
     Indication: RHEUMATOID ARTHRITIS
     Dosage: UNSPECIFIED
     Route: 048
  6. NORVASC [Concomitant]
     Dosage: UNSPECIFIED
     Route: 048
  7. RHEUMATREX [Concomitant]
     Indication: RHEUMATOID ARTHRITIS
     Dosage: UNSPECIFIED
     Route: 048
     Dates: end: 20060906
  8. LOXONIN [Concomitant]
     Indication: RHEUMATOID ARTHRITIS
     Dosage: UNSPECIFIED
     Route: 048

REACTIONS (1)
  - ILEUS [None]
